APPROVED DRUG PRODUCT: SODIUM FLUORIDE F-18
Active Ingredient: SODIUM FLUORIDE F-18
Strength: 10-200mCi/ML
Dosage Form/Route: INJECTABLE;INTRAVENOUS
Application: A203247 | Product #001
Applicant: UNIV TEXAS MD ANDERSON CANCER CENTER
Approved: Dec 23, 2013 | RLD: No | RS: No | Type: DISCN